FAERS Safety Report 20988082 (Version 10)
Quarter: 2022Q4

REPORT INFORMATION
  Report Type: Report from Study
  Country: US (occurrence: US)
  Receive Date: 20220621
  Receipt Date: 20221213
  Transmission Date: 20230112
  Serious: Yes (Other)
  Sender: FDA-Public Use
  Company Number: US-TAKEDA-2022TUS035050

PATIENT
  Age: 76 Year
  Sex: Female
  Weight: 100 kg

DRUGS (15)
  1. MOBOCERTINIB [Suspect]
     Active Substance: MOBOCERTINIB
     Indication: Lung neoplasm malignant
     Dosage: 40 MILLIGRAM, QD
     Route: 048
     Dates: start: 20220523
  2. MOBOCERTINIB [Suspect]
     Active Substance: MOBOCERTINIB
     Indication: Brain neoplasm
     Dosage: 80 MILLIGRAM, QD
     Route: 048
  3. MOBOCERTINIB [Suspect]
     Active Substance: MOBOCERTINIB
     Dosage: 40 MILLIGRAM, QD
     Route: 048
     Dates: start: 20220601
  4. MOBOCERTINIB [Suspect]
     Active Substance: MOBOCERTINIB
     Dosage: 40 MILLIGRAM, QD
     Route: 048
     Dates: start: 20220603
  5. DEXAMETHASONE [Suspect]
     Active Substance: DEXAMETHASONE
     Indication: Product used for unknown indication
     Dosage: UNK
     Route: 065
  6. LEVOTHYROXINE [Concomitant]
     Active Substance: LEVOTHYROXINE
     Indication: Hypothyroidism
     Dosage: UNK
     Route: 065
  7. LOSARTAN [Concomitant]
     Active Substance: LOSARTAN
     Dosage: 50 MILLIGRAM, QD
     Route: 065
  8. ATORVASTATIN [Concomitant]
     Active Substance: ATORVASTATIN
     Dosage: UNK
     Route: 065
  9. ATENOLOL [Concomitant]
     Active Substance: ATENOLOL
     Dosage: UNK
     Route: 065
  10. METFORMIN [Concomitant]
     Active Substance: METFORMIN HYDROCHLORIDE
     Indication: Blood glucose increased
     Dosage: UNK
     Route: 065
     Dates: end: 20220510
  11. SYNTHROID [Concomitant]
     Active Substance: LEVOTHYROXINE SODIUM
     Indication: Thyroid disorder
     Dosage: UNK
     Route: 065
  12. LOPERAMIDE [Concomitant]
     Active Substance: LOPERAMIDE
     Dosage: UNK
     Route: 065
  13. AMBIEN [Concomitant]
     Active Substance: ZOLPIDEM TARTRATE
     Indication: Insomnia
     Dosage: UNK
     Route: 065
  14. PEPTO-BISMOL [Concomitant]
     Active Substance: BISMUTH SUBSALICYLATE
     Indication: Flatulence
     Dosage: UNK
     Route: 065
  15. TYLENOL [Concomitant]
     Active Substance: ACETAMINOPHEN
     Dosage: UNK
     Route: 065

REACTIONS (45)
  - Metastases to central nervous system [Unknown]
  - Lung neoplasm malignant [Unknown]
  - Lung carcinoma cell type unspecified recurrent [Unknown]
  - Neck mass [Unknown]
  - Cerebral disorder [Unknown]
  - Mood altered [Unknown]
  - Poor quality sleep [Unknown]
  - Cystitis [Unknown]
  - Dry mouth [Unknown]
  - Malaise [Recovering/Resolving]
  - Gingival pain [Recovering/Resolving]
  - Tongue discolouration [Recovering/Resolving]
  - Oral discomfort [Recovering/Resolving]
  - Glossodynia [Recovering/Resolving]
  - Peripheral swelling [Unknown]
  - Epistaxis [Unknown]
  - Illness [Unknown]
  - Nail discolouration [Unknown]
  - Cardiac disorder [Unknown]
  - COVID-19 [Recovering/Resolving]
  - Oropharyngeal pain [Unknown]
  - Hypersomnia [Unknown]
  - Dizziness [Unknown]
  - Flatulence [Unknown]
  - Blood glucose increased [Unknown]
  - Muscle spasms [Unknown]
  - Swelling face [Unknown]
  - Drug intolerance [Unknown]
  - Taste disorder [Unknown]
  - Stomatitis [Recovering/Resolving]
  - Dyspepsia [Unknown]
  - Fatigue [Recovering/Resolving]
  - Pain in extremity [Recovering/Resolving]
  - Pruritus [Recovering/Resolving]
  - Rash [Unknown]
  - Alopecia [Unknown]
  - Cough [Unknown]
  - Weight decreased [Unknown]
  - Diarrhoea [Not Recovered/Not Resolved]
  - Nausea [Recovering/Resolving]
  - Decreased appetite [Unknown]
  - Skin exfoliation [Unknown]
  - Onychoclasis [Unknown]
  - Intentional product use issue [Unknown]
  - Skin discolouration [Unknown]

NARRATIVE: CASE EVENT DATE: 20220523
